FAERS Safety Report 10445940 (Version 1)
Quarter: 2014Q3

REPORT INFORMATION
  Report Type: Spontaneous
  Country: FR (occurrence: FR)
  Receive Date: 20140910
  Receipt Date: 20140910
  Transmission Date: 20150326
  Serious: Yes (Hospitalization)
  Sender: FDA-Public Use
  Company Number: FR-ASTRAZENECA-2014SE65514

PATIENT
  Age: 79 Year
  Sex: Male

DRUGS (17)
  1. LEVOTHYROX [Concomitant]
     Active Substance: LEVOTHYROXINE
  2. AMLOR [Concomitant]
     Active Substance: AMLODIPINE BESYLATE
  3. LASILIX [Concomitant]
     Active Substance: FUROSEMIDE
  4. LANTUS [Concomitant]
     Active Substance: INSULIN GLARGINE
  5. KARDEGIC [Concomitant]
     Active Substance: ASPIRIN LYSINE
  6. CORDARONE [Concomitant]
     Active Substance: AMIODARONE HYDROCHLORIDE
  7. PARACETAMOL [Concomitant]
     Active Substance: ACETAMINOPHEN
  8. BISOCE [Concomitant]
     Active Substance: BISOPROLOL
  9. TARGOCID [Suspect]
     Active Substance: TEICOPLANIN
     Indication: ENTEROCOCCAL INFECTION
     Route: 042
     Dates: start: 20140721, end: 20140727
  10. CLOXACILLINE [Concomitant]
  11. INEXIUM [Suspect]
     Active Substance: ESOMEPRAZOLE
     Route: 048
     Dates: start: 20140626, end: 20140730
  12. DIFFU K [Concomitant]
     Active Substance: POTASSIUM CHLORIDE
  13. LOVENOX [Concomitant]
     Active Substance: ENOXAPARIN SODIUM
  14. XANAX [Concomitant]
     Active Substance: ALPRAZOLAM
  15. TAHOR [Concomitant]
     Active Substance: ATORVASTATIN CALCIUM
  16. TRAMADOL [Concomitant]
     Active Substance: TRAMADOL
  17. CUBICIN [Concomitant]
     Active Substance: DAPTOMYCIN

REACTIONS (3)
  - Enterococcal infection [Unknown]
  - Device related infection [Unknown]
  - Thrombocytopenia [Recovering/Resolving]

NARRATIVE: CASE EVENT DATE: 20140721
